FAERS Safety Report 5073434-2 (Version None)
Quarter: 2006Q3

REPORT INFORMATION
  Report Type: 
  Country: None (occurrence: None)
  Receive Date: 20060717
  Receipt Date: 20051101
  Transmission Date: 20061208
  Serious: No
  Sender: FDA-Public Use
  Company Number: 2005002141

PATIENT
  Age: 53 Year
  Sex: Female

DRUGS (1)
  1. TARCEVA [Suspect]
     Indication: LUNG ADENOCARCINOMA
     Dosage: 150 MG (QD), ORAL
     Route: 048

REACTIONS (6)
  - DRY SKIN [None]
  - EYE PAIN [None]
  - HALO VISION [None]
  - KERATITIS [None]
  - RASH [None]
  - VISION BLURRED [None]
